FAERS Safety Report 7377478-7 (Version None)
Quarter: 2011Q1

REPORT INFORMATION
  Report Type: 
  Country: None (occurrence: None)
  Receive Date: 20110315
  Receipt Date: 20110310
  Transmission Date: 20110831
  Serious: Yes (Hospitalization)
  Sender: FDA-Public Use
  Company Number: 013361

PATIENT
  Sex: Female
  Weight: 178 kg

DRUGS (11)
  1. SIMVASTATIN [Concomitant]
  2. LIDODERM [Concomitant]
  3. CERTOLIZUMAB PEGOL [Suspect]
     Indication: RHEUMATOID ARTHRITIS
     Dosage: (200 MG 1X/2 WEEKS, N OF DOSES: 17 SUBCUTANEOUS)
     Route: 058
     Dates: start: 20090630, end: 20100524
  4. TEMAZEPAM [Concomitant]
  5. MOTRIN [Concomitant]
  6. PREDNISONE [Concomitant]
  7. OXYCODONE HCL AND ACETAMINOPHEN [Concomitant]
  8. FOLIC ACID [Concomitant]
  9. METHOTREXATE [Concomitant]
  10. NORTRIPTYLINE HCL [Concomitant]
  11. GABAPENTIN [Concomitant]

REACTIONS (1)
  - LIVER FUNCTION TEST ABNORMAL [None]
